FAERS Safety Report 15269409 (Version 1)
Quarter: 2018Q3

REPORT INFORMATION
  Report Type: Spontaneous
  Country: US (occurrence: US)
  Receive Date: 20180726
  Receipt Date: 20180726
  Transmission Date: 20181010
  Serious: Yes (Hospitalization)
  Sender: FDA-Public Use
  Company Number: None

PATIENT
  Age: 75 Year
  Sex: Male
  Weight: 90.72 kg

DRUGS (1)
  1. ELIQUIS [Suspect]
     Active Substance: APIXABAN
     Indication: ANEURYSM REPAIR
     Dosage: ?          QUANTITY:166 DF DOSAGE FORM;?
     Route: 048
     Dates: start: 20180414

REACTIONS (1)
  - Cerebrovascular accident [None]
